FAERS Safety Report 6349612-9 (Version None)
Quarter: 2009Q3

REPORT INFORMATION
  Report Type: 
  Country: None (occurrence: None)
  Receive Date: 20090911
  Receipt Date: 20090827
  Transmission Date: 20100115
  Serious: Yes (Other)
  Sender: FDA-Public Use
  Company Number: GB-ABBOTT-09P-167-0593780-00

PATIENT
  Sex: Female
  Weight: 50 kg

DRUGS (4)
  1. ERYTHROCIN LACTOBIONATE [Suspect]
     Indication: ACNE
     Dosage: DAILY
     Route: 048
     Dates: start: 20090601, end: 20090709
  2. CIPRAMIL [Suspect]
     Indication: ANXIETY
     Route: 048
     Dates: start: 20090601
  3. CIPRAMIL [Suspect]
     Route: 048
  4. CIPRAMIL [Suspect]
     Route: 048
     Dates: end: 20090709

REACTIONS (6)
  - AGITATION [None]
  - HEADACHE [None]
  - MUSCLE TWITCHING [None]
  - RESTLESSNESS [None]
  - SEROTONIN SYNDROME [None]
  - TREMOR [None]
